FAERS Safety Report 19081049 (Version 1)
Quarter: 2021Q2

REPORT INFORMATION
  Report Type: Report from Study
  Country: US (occurrence: US)
  Receive Date: 20210401
  Receipt Date: 20210401
  Transmission Date: 20210717
  Serious: Yes (Other)
  Sender: FDA-Public Use
  Company Number: US-EMD SERONO-9046593

PATIENT
  Age: 47 Year
  Sex: Female

DRUGS (1)
  1. REBIF [Suspect]
     Active Substance: INTERFERON BETA-1A
     Indication: MULTIPLE SCLEROSIS
     Route: 058
     Dates: start: 20030423

REACTIONS (9)
  - Gallbladder disorder [Recovering/Resolving]
  - Cardiac disorder [Unknown]
  - Gingival disorder [Recovering/Resolving]
  - Hepatic steatosis [Not Recovered/Not Resolved]
  - Dyspepsia [Recovering/Resolving]
  - Dental caries [Recovering/Resolving]
  - Hepatomegaly [Unknown]
  - Influenza like illness [Recovered/Resolved]
  - Peripheral swelling [Unknown]

NARRATIVE: CASE EVENT DATE: 2016
